FAERS Safety Report 25222928 (Version 1)
Quarter: 2025Q2

REPORT INFORMATION
  Report Type: Spontaneous
  Country: TW (occurrence: TW)
  Receive Date: 20250422
  Receipt Date: 20250422
  Transmission Date: 20250717
  Serious: Yes (Death)
  Sender: ROCHE
  Company Number: TW-ROCHE-10000258335

PATIENT
  Age: 49 Year
  Sex: Female

DRUGS (8)
  1. ATEZOLIZUMAB [Suspect]
     Active Substance: ATEZOLIZUMAB
     Indication: Hepatocellular carcinoma
     Route: 065
  2. BEVACIZUMAB [Suspect]
     Active Substance: BEVACIZUMAB
     Indication: Hepatocellular carcinoma
     Route: 065
  3. LENVATINIB [Concomitant]
     Active Substance: LENVATINIB
     Indication: Hepatocellular carcinoma
  4. PEMBROLIZUMAB [Concomitant]
     Active Substance: PEMBROLIZUMAB
     Indication: Hepatocellular carcinoma
  5. CISPLATIN [Concomitant]
     Active Substance: CISPLATIN
     Indication: Hepatocellular carcinoma
  6. EPIRUBICIN [Concomitant]
     Active Substance: EPIRUBICIN
     Indication: Hepatocellular carcinoma
  7. FLUOROURACIL [Concomitant]
     Active Substance: FLUOROURACIL
     Indication: Hepatocellular carcinoma
  8. LEUCOVORIN [Concomitant]
     Active Substance: LEUCOVORIN\LEUCOVORIN CALCIUM
     Indication: Hepatocellular carcinoma

REACTIONS (2)
  - Metastases to lung [Fatal]
  - Metastases to liver [Fatal]
